FAERS Safety Report 6782077-1 (Version None)
Quarter: 2010Q2

REPORT INFORMATION
  Report Type: 
  Country: None (occurrence: None)
  Receive Date: 20100621
  Receipt Date: 20100614
  Transmission Date: 20101027
  Serious: Yes (Other)
  Sender: FDA-Public Use
  Company Number: B0661235A

PATIENT
  Age: 20 Year
  Sex: Male

DRUGS (4)
  1. PAXIL [Suspect]
     Indication: DRUG USE FOR UNKNOWN INDICATION
     Dosage: 10MG PER DAY
     Route: 048
     Dates: start: 20091001, end: 20091101
  2. PAXIL [Suspect]
     Dosage: 20MG PER DAY
     Route: 048
     Dates: start: 20091101, end: 20100528
  3. MYSLEE [Concomitant]
     Dosage: 10MG PER DAY
     Route: 048
  4. LEXOTAN [Concomitant]
     Dosage: 15MG PER DAY
     Route: 048

REACTIONS (1)
  - ACTIVATION SYNDROME [None]
